FAERS Safety Report 23777018 (Version 1)
Quarter: 2024Q2

REPORT INFORMATION
  Report Type: Spontaneous
  Country: US (occurrence: US)
  Receive Date: 20240424
  Receipt Date: 20240424
  Transmission Date: 20240715
  Serious: Yes (Life-Threatening, Hospitalization)
  Sender: FDA-Public Use
  Company Number: US-862174955-ML2024-02478

PATIENT
  Age: 19 Year

DRUGS (1)
  1. BUPROPION [Suspect]
     Active Substance: BUPROPION
     Indication: Product used for unknown indication

REACTIONS (7)
  - Disorientation [Unknown]
  - Speech disorder [Unknown]
  - Rapid eye movements sleep abnormal [Unknown]
  - Hypotonia [Unknown]
  - Agitation [Unknown]
  - Tremor [Unknown]
  - Intentional overdose [Unknown]
